FAERS Safety Report 7572855-3 (Version None)
Quarter: 2011Q2

REPORT INFORMATION
  Report Type: 
  Country: None (occurrence: None)
  Receive Date: 20110627
  Receipt Date: 20110613
  Transmission Date: 20111010
  Serious: Yes (Other)
  Sender: FDA-Public Use
  Company Number: US-ELI_LILLY_AND_COMPANY-US201106004103

PATIENT
  Sex: Female

DRUGS (2)
  1. CELEBREX [Concomitant]
     Dosage: UNK
     Route: 048
  2. CYMBALTA [Suspect]
     Dosage: UNK, UNKNOWN

REACTIONS (5)
  - ADVERSE EVENT [None]
  - GASTRIC HAEMORRHAGE [None]
  - GASTRIC ULCER [None]
  - CONFUSIONAL STATE [None]
  - WEIGHT INCREASED [None]
